FAERS Safety Report 15756388 (Version 3)
Quarter: 2019Q2

REPORT INFORMATION
  Report Type: Report from Study
  Country: US (occurrence: US)
  Receive Date: 20181224
  Receipt Date: 20190527
  Transmission Date: 20190711
  Serious: Yes (Other)
  Sender: FDA-Public Use
  Company Number: US-BRISTOL-MYERS SQUIBB COMPANY-BMS-2018-120934

PATIENT
  Sex: Male

DRUGS (1)
  1. NIVOLUMAB [Suspect]
     Active Substance: NIVOLUMAB
     Indication: HEPATOCELLULAR CARCINOMA
     Dosage: 480 MG, Q4WK
     Route: 042
     Dates: start: 20180822, end: 20190306

REACTIONS (22)
  - Lichen planus [Not Recovered/Not Resolved]
  - Pruritus [Not Recovered/Not Resolved]
  - Back pain [Unknown]
  - Fatigue [Unknown]
  - Rash pustular [Unknown]
  - Eating disorder [Unknown]
  - Candida infection [Unknown]
  - Gingival pain [Unknown]
  - Constipation [Unknown]
  - Dry skin [Not Recovered/Not Resolved]
  - Joint swelling [Unknown]
  - Condition aggravated [Unknown]
  - Musculoskeletal pain [Unknown]
  - Arthralgia [Not Recovered/Not Resolved]
  - Peripheral swelling [Unknown]
  - Anger [Unknown]
  - Oral pain [Not Recovered/Not Resolved]
  - Muscular weakness [Unknown]
  - Respiration abnormal [Unknown]
  - Pain in extremity [Unknown]
  - Asthenia [Unknown]
  - Glossodynia [Not Recovered/Not Resolved]
